FAERS Safety Report 5284786-2 (Version None)
Quarter: 2007Q1

REPORT INFORMATION
  Report Type: 
  Country: None (occurrence: None)
  Receive Date: 20061226
  Receipt Date: 20060622
  Transmission Date: 20070707
  Serious: Yes (Hospitalization)
  Sender: FDA-Public Use
  Company Number: 2006S1000157

PATIENT
  Age: 55 Year
  Sex: Male

DRUGS (7)
  1. SORIATANE [Suspect]
     Indication: PSORIASIS
     Dosage: SEE IMAGE
     Route: 048
     Dates: start: 20040501, end: 20041001
  2. SORIATANE [Suspect]
     Indication: PSORIASIS
     Dosage: SEE IMAGE
     Route: 048
     Dates: start: 20041001, end: 20060101
  3. SYNTHROID [Concomitant]
  4. FOLIC ACID [Concomitant]
  5. LOTENSIN [Concomitant]
  6. TRIAMCINOLONE [Concomitant]
  7. VITAMINS [Concomitant]

REACTIONS (2)
  - EMBOLIC STROKE [None]
  - PHOTOPHOBIA [None]
